FAERS Safety Report 16750288 (Version 1)
Quarter: 2019Q3

REPORT INFORMATION
  Report Type: Spontaneous
  Country: US (occurrence: US)
  Receive Date: 20190828
  Receipt Date: 20190828
  Transmission Date: 20191005
  Serious: No
  Sender: FDA-Public Use
  Company Number: US-PFIZER INC-2019363265

PATIENT
  Age: 72 Year
  Sex: Female
  Weight: 53.61 kg

DRUGS (2)
  1. CLINDAMYCIN HCL [Suspect]
     Active Substance: CLINDAMYCIN HYDROCHLORIDE
     Indication: ORAL SURGERY
     Dosage: UNK
  2. RELPAX [Suspect]
     Active Substance: ELETRIPTAN HYDROBROMIDE
     Indication: MIGRAINE
     Dosage: UNK, AS NEEDED (40MG 1/2 TAB AS NEEDED)

REACTIONS (3)
  - Pain [Unknown]
  - Abdominal discomfort [Unknown]
  - Muscle spasms [Unknown]
